FAERS Safety Report 6891429-0 (Version None)
Quarter: 2010Q3

REPORT INFORMATION
  Report Type: 
  Country: None (occurrence: None)
  Receive Date: 20100731
  Receipt Date: 20070815
  Transmission Date: 20110219
  Serious: No
  Sender: FDA-Public Use
  Company Number: US-PFIZER INC-2007022114

PATIENT
  Sex: Female

DRUGS (3)
  1. NORVASC [Suspect]
  2. ADVAIR DISKUS 100/50 [Suspect]
  3. SYNTHROID [Suspect]

REACTIONS (2)
  - DRUG INEFFECTIVE [None]
  - DRY THROAT [None]
